FAERS Safety Report 4387671-3 (Version None)
Quarter: 2004Q2

REPORT INFORMATION
  Report Type: 
  Country: None (occurrence: None)
  Receive Date: 20040625
  Receipt Date: 20040616
  Transmission Date: 20050107
  Serious: Yes (Hospitalization)
  Sender: FDA-Public Use
  Company Number: 2004040758

PATIENT
  Age: 66 Year
  Sex: Male
  Weight: 78 kg

DRUGS (4)
  1. LIPITOR [Suspect]
     Indication: ILL-DEFINED DISORDER
     Dosage: 80 MG (80 MG, 1 IN 1D)
     Dates: start: 20040501, end: 20040616
  2. GEMFIBROZIL [Suspect]
     Indication: HYPERTRIGLYCERIDAEMIA
     Dosage: 1200 MG (600 MG, 2 IN 1 D)
     Dates: start: 20040506, end: 20040501
  3. PERINDOPRIL ERBUMINE        (PERINDOPRIL ERBUMINE) [Concomitant]
  4. ATENOLOL [Concomitant]

REACTIONS (3)
  - DIARRHOEA [None]
  - LOOSE STOOLS [None]
  - PANCREATITIS ACUTE [None]
